FAERS Safety Report 15826250 (Version 1)
Quarter: 2019Q1

REPORT INFORMATION
  Report Type: Spontaneous
  Country: US (occurrence: US)
  Receive Date: 20190115
  Receipt Date: 20190115
  Transmission Date: 20190417
  Serious: Yes (Hospitalization, Other)
  Sender: FDA-Public Use
  Company Number: US-PFIZER INC-2018534432

PATIENT
  Age: 84 Year
  Sex: Male

DRUGS (1)
  1. THROMBIN [Suspect]
     Active Substance: THROMBIN
     Indication: VASCULAR PSEUDOANEURYSM
     Dosage: UNK
     Route: 061

REACTIONS (3)
  - Coagulation test abnormal [Recovered/Resolved]
  - Epistaxis [Unknown]
  - Coagulation factor V level decreased [Recovered/Resolved]

NARRATIVE: CASE EVENT DATE: 199210
